FAERS Safety Report 14156262 (Version 2)
Quarter: 2017Q4

REPORT INFORMATION
  Report Type: Spontaneous
  Country: US (occurrence: US)
  Receive Date: 20171103
  Receipt Date: 20171227
  Transmission Date: 20180321
  Serious: No
  Sender: FDA-Public Use
  Company Number: US-LUPIN PHARMACEUTICALS INC.-2017-05667

PATIENT

DRUGS (8)
  1. ZOLPIDEM TARTRATE  SUBLINGUAL TABLETS 1.75 MG [Suspect]
     Active Substance: ZOLPIDEM TARTRATE
     Indication: INSOMNIA
     Dosage: 1 DF, QD, QHS (EVERY NIGHT AT BEDTIME)
     Route: 048
     Dates: start: 201709
  2. ISDN [Concomitant]
     Indication: CARDIAC DISORDER
     Dosage: UNK
     Route: 065
  3. AMLODIPINE [Concomitant]
     Active Substance: AMLODIPINE BESYLATE
     Indication: CARDIAC DISORDER
     Dosage: UNK
     Route: 065
  4. ZOLPIDEM TARTRATE  SUBLINGUAL TABLETS 1.75 MG [Suspect]
     Active Substance: ZOLPIDEM TARTRATE
     Dosage: 2 DF, QD, QHS (EVERY NIGHT AT BEDTIME)
     Route: 048
     Dates: start: 201709
  5. ZOLPIDEM TARTRATE  SUBLINGUAL TABLETS 3.5 MG [Suspect]
     Active Substance: ZOLPIDEM TARTRATE
     Indication: INSOMNIA
     Dosage: UNK
     Route: 048
  6. FURSEMIDE [Concomitant]
     Active Substance: FUROSEMIDE
     Indication: CARDIAC DISORDER
     Dosage: UNK
     Route: 065
  7. CREON [Concomitant]
     Active Substance: PANCRELIPASE AMYLASE\PANCRELIPASE LIPASE\PANCRELIPASE PROTEASE
     Indication: PANCREATITIS
     Dosage: 2 DF, TID
     Route: 048
  8. XARELTO [Concomitant]
     Active Substance: RIVAROXABAN
     Indication: CARDIAC DISORDER
     Dosage: UNK
     Route: 065

REACTIONS (2)
  - Product use complaint [Unknown]
  - Drug ineffective [Unknown]

NARRATIVE: CASE EVENT DATE: 201709
